FAERS Safety Report 4781105-2 (Version None)
Quarter: 2005Q3

REPORT INFORMATION
  Report Type: 
  Country: None (occurrence: None)
  Receive Date: 20050926
  Receipt Date: 20050926
  Transmission Date: 20060218
  Serious: Yes (Death, Hospitalization)
  Sender: FDA-Public Use
  Company Number: None

PATIENT
  Sex: Male
  Weight: 15.5 kg

DRUGS (2)
  1. TEMOZOLOMIDE [Suspect]
     Indication: ACUTE LYMPHOCYTIC LEUKAEMIA
     Dosage: SEE IMAGE
     Dates: start: 20050811, end: 20050815
  2. TEMOZOLOMIDE [Suspect]
     Indication: ACUTE LYMPHOCYTIC LEUKAEMIA
     Dosage: SEE IMAGE
     Dates: start: 20050811

REACTIONS (23)
  - ABDOMINAL DISTENSION [None]
  - BLOOD BICARBONATE DECREASED [None]
  - BLOOD BILIRUBIN INCREASED [None]
  - BLOOD CHLORIDE DECREASED [None]
  - BLOOD POTASSIUM INCREASED [None]
  - BLOOD UREA INCREASED [None]
  - BLOOD URIC ACID INCREASED [None]
  - CARDIO-RESPIRATORY ARREST [None]
  - DECREASED ACTIVITY [None]
  - DISCOMFORT [None]
  - GENERAL PHYSICAL HEALTH DETERIORATION [None]
  - HAEMOGLOBIN DECREASED [None]
  - HEPATOSPLENOMEGALY [None]
  - HYPOVENTILATION [None]
  - LEUKAEMIA [None]
  - MALIGNANT NEOPLASM PROGRESSION [None]
  - MULTI-ORGAN FAILURE [None]
  - ORAL INTAKE REDUCED [None]
  - PLATELET COUNT DECREASED [None]
  - PYREXIA [None]
  - RESPIRATORY DISTRESS [None]
  - SEPTIC SHOCK [None]
  - WHITE BLOOD CELL COUNT INCREASED [None]
